FAERS Safety Report 19970615 (Version 1)
Quarter: 2021Q4

REPORT INFORMATION
  Report Type: Spontaneous
  Country: GB (occurrence: GB)
  Receive Date: 20211020
  Receipt Date: 20211020
  Transmission Date: 20220304
  Serious: Yes (Other)
  Sender: FDA-Public Use
  Company Number: GB-TEVA-2021-GB-1966425

PATIENT
  Age: 70 Year
  Sex: Male

DRUGS (7)
  1. DORZOLAMIDE HYDROCHLORIDE\TIMOLOL MALEATE [Suspect]
     Active Substance: DORZOLAMIDE HYDROCHLORIDE\TIMOLOL MALEATE
     Indication: Ocular hypertension
     Dosage: TO THE RIGHT EYE
     Route: 061
  2. METHYLPREDNISOLONE [Suspect]
     Active Substance: METHYLPREDNISOLONE
     Indication: Idiopathic orbital inflammation
     Route: 042
  3. LATANOPROST [Suspect]
     Active Substance: LATANOPROST
     Indication: Ocular hypertension
     Dosage: AT NIGHT TO THE RIGHT EYE
     Route: 061
  4. BRIMONIDINE [Suspect]
     Active Substance: BRIMONIDINE TARTRATE
     Indication: Ocular hypertension
     Dosage: TO THE RIGHT EYE
     Route: 061
  5. METHOTREXATE [Concomitant]
     Active Substance: METHOTREXATE
     Indication: Idiopathic orbital inflammation
     Route: 048
  6. FOLIC ACID [Concomitant]
     Active Substance: FOLIC ACID
     Indication: Idiopathic orbital inflammation
     Dosage: 5 MILLIGRAM DAILY;
     Route: 065
  7. ACETAZOLAMIDE [Concomitant]
     Active Substance: ACETAZOLAMIDE
     Indication: Ocular hypertension
     Dosage: 500 MILLIGRAM DAILY; SLOW RELEASE
     Route: 048

REACTIONS (4)
  - Punctate keratitis [Recovering/Resolving]
  - Drug intolerance [Recovering/Resolving]
  - Prostaglandin analogue periorbitopathy [Recovering/Resolving]
  - Drug ineffective [Unknown]
